FAERS Safety Report 21665336 (Version 1)
Quarter: 2022Q4

REPORT INFORMATION
  Report Type: Report from Study
  Country: CA (occurrence: CA)
  Receive Date: 20221201
  Receipt Date: 20221201
  Transmission Date: 20230113
  Serious: Yes (Hospitalization)
  Sender: FDA-Public Use
  Company Number: CA-BIOGEN-2022BI01171834

PATIENT
  Sex: Female

DRUGS (1)
  1. TECFIDERA [Suspect]
     Active Substance: DIMETHYL FUMARATE
     Indication: Multiple sclerosis
     Route: 050
     Dates: start: 20150821

REACTIONS (4)
  - Feeling of despair [Not Recovered/Not Resolved]
  - Memory impairment [Not Recovered/Not Resolved]
  - Prescribed underdose [Unknown]
  - Product dose omission in error [Not Recovered/Not Resolved]
